FAERS Safety Report 6321428-9 (Version None)
Quarter: 2009Q3

REPORT INFORMATION
  Report Type: 
  Country: None (occurrence: None)
  Receive Date: 20090822
  Receipt Date: 20090122
  Transmission Date: 20100115
  Serious: No
  Sender: FDA-Public Use
  Company Number: US-ABBOTT-09P-163-0499422-00

PATIENT
  Sex: Male
  Weight: 54.48 kg

DRUGS (4)
  1. NIASPAN [Suspect]
     Indication: HIGH DENSITY LIPOPROTEIN DECREASED
     Route: 048
     Dates: start: 20080601, end: 20090101
  2. NIASPAN [Suspect]
     Route: 048
     Dates: start: 20090101
  3. LIPITOR [Concomitant]
     Indication: DRUG USE FOR UNKNOWN INDICATION
  4. ATACAND [Concomitant]
     Indication: HYPERTENSION

REACTIONS (1)
  - FLUSHING [None]
